FAERS Safety Report 10891779 (Version 1)
Quarter: 2015Q1

REPORT INFORMATION
  Report Type: Spontaneous
  Country: US (occurrence: US)
  Receive Date: 20150306
  Receipt Date: 20150306
  Transmission Date: 20150721
  Serious: Yes (Hospitalization)
  Sender: FDA-Public Use
  Company Number: US-OTSUKA-US-2015-11013

PATIENT

DRUGS (1)
  1. SAMSCA [Suspect]
     Active Substance: TOLVAPTAN
     Indication: HYPONATRAEMIA
     Dosage: UNK
     Route: 065

REACTIONS (6)
  - Treatment noncompliance [Unknown]
  - Hospitalisation [Unknown]
  - Palpitations [Unknown]
  - Hypothyroidism [Unknown]
  - Skin ulcer [Unknown]
  - Hyponatraemia [Unknown]
